FAERS Safety Report 8419290-3 (Version None)
Quarter: 2012Q2

REPORT INFORMATION
  Report Type: 
  Country: None (occurrence: None)
  Receive Date: 20120607
  Receipt Date: 20120530
  Transmission Date: 20120825
  Serious: No
  Sender: FDA-Public Use
  Company Number: US-ROCHE-GNE223881

PATIENT
  Sex: Male

DRUGS (1)
  1. SOMATROPIN [Suspect]
     Indication: BRAIN NEOPLASM

REACTIONS (3)
  - INCORRECT DOSE ADMINISTERED [None]
  - LIPOMA [None]
  - BLOOD CHOLESTEROL INCREASED [None]
